FAERS Safety Report 13633317 (Version 1)
Quarter: 2017Q2

REPORT INFORMATION
  Report Type: Spontaneous
  Country: BE (occurrence: BE)
  Receive Date: 20170609
  Receipt Date: 20170609
  Transmission Date: 20170830
  Serious: Yes (Death, Hospitalization)
  Sender: FDA-Public Use
  Company Number: BE-ROCHE-1941898

PATIENT
  Age: 54 Year
  Sex: Female

DRUGS (1)
  1. VALIUM [Suspect]
     Active Substance: DIAZEPAM
     Indication: ALCOHOL WITHDRAWAL SYNDROME
     Route: 065

REACTIONS (14)
  - Abdominal pain [Fatal]
  - Tachycardia [Fatal]
  - Gastrointestinal pain [Fatal]
  - Dehydration [Fatal]
  - Circulatory collapse [Fatal]
  - Hypotension [Fatal]
  - Hypoxia [Fatal]
  - Seizure [Fatal]
  - Hypothermia [Fatal]
  - Septic shock [Fatal]
  - Hepatic cirrhosis [Fatal]
  - Somnolence [Fatal]
  - Respiratory acidosis [Fatal]
  - Pneumonia [Fatal]
